FAERS Safety Report 9932561 (Version 1)
Quarter: 2014Q1

REPORT INFORMATION
  Report Type: Spontaneous
  Country: US (occurrence: US)
  Receive Date: 20140228
  Receipt Date: 20140228
  Transmission Date: 20141002
  Serious: No
  Sender: FDA-Public Use
  Company Number: US-GLAXOSMITHKLINE-A1020982A

PATIENT
  Age: 59 Year
  Sex: Female

DRUGS (11)
  1. LAMICTAL [Suspect]
     Indication: PRODUCT USED FOR UNKNOWN INDICATION
     Route: 065
  2. GEODON [Concomitant]
  3. TRAZODONE [Concomitant]
  4. PROZAC [Concomitant]
  5. BENADRYL [Concomitant]
  6. NOVOLOG [Concomitant]
  7. GLYBURIDE [Concomitant]
  8. LEVOXYL [Concomitant]
  9. ZYRTEC [Concomitant]
  10. NEXIUM [Concomitant]
  11. LISINOPRIL [Concomitant]

REACTIONS (1)
  - Hypersensitivity [Unknown]
